FAERS Safety Report 7597380-5 (Version None)
Quarter: 2011Q3

REPORT INFORMATION
  Report Type: 
  Country: None (occurrence: None)
  Receive Date: 20110708
  Receipt Date: 20110628
  Transmission Date: 20111222
  Serious: Yes (Hospitalization)
  Sender: FDA-Public Use
  Company Number: US-NOVOPROD-330872

PATIENT
  Sex: Female
  Weight: 82.086 kg

DRUGS (2)
  1. NOVOLOG [Suspect]
     Indication: TYPE 1 DIABETES MELLITUS
     Dosage: 10 U, TID
     Route: 058
     Dates: start: 20070101
  2. LEVEMIR [Suspect]
     Indication: TYPE 1 DIABETES MELLITUS
     Dosage: 60 U, QD AT NIGHT
     Route: 058
     Dates: start: 20070101

REACTIONS (2)
  - CORONARY ARTERY OCCLUSION [None]
  - BLOOD GLUCOSE DECREASED [None]
